FAERS Safety Report 6860695-X (Version None)
Quarter: 2010Q3

REPORT INFORMATION
  Report Type: 
  Country: None (occurrence: None)
  Receive Date: 20100719
  Receipt Date: 20100719
  Transmission Date: 20110219
  Serious: Yes (Hospitalization, Other)
  Sender: FDA-Public Use
  Company Number: None

PATIENT
  Age: 60 Year
  Sex: Female
  Weight: 64.8644 kg

DRUGS (2)
  1. TRIAZOLAM [Suspect]
     Indication: SLEEP DISORDER
     Dosage: 2 BEDTIME
     Dates: start: 20100623, end: 20100713
  2. DIAZEPAM [Concomitant]

REACTIONS (3)
  - ANXIETY [None]
  - INSOMNIA [None]
  - TRANSIENT ISCHAEMIC ATTACK [None]
